FAERS Safety Report 8966764 (Version 2)
Quarter: 2013Q1

REPORT INFORMATION
  Report Type: Spontaneous
  Country: US (occurrence: US)
  Receive Date: 20121217
  Receipt Date: 20130214
  Transmission Date: 20140127
  Serious: Yes (Other)
  Sender: FDA-Public Use
  Company Number: US-PFIZER INC-2012318329

PATIENT
  Age: 42 Year
  Sex: Female
  Weight: 77.1 kg

DRUGS (4)
  1. PRISTIQ [Suspect]
     Indication: ANXIETY
     Dosage: 50 MG, DAILY
     Route: 048
     Dates: start: 20121119
  2. PRISTIQ [Suspect]
     Indication: DEPRESSION
  3. LEXAPRO [Concomitant]
     Dosage: UNK
  4. LEXAPRO [Concomitant]
     Dosage: 10 MG, X 1 WEEK
     Dates: start: 20121119

REACTIONS (8)
  - Haematochezia [Recovered/Resolved]
  - Agitation [Recovered/Resolved]
  - Decreased appetite [Recovered/Resolved]
  - Weight decreased [Recovered/Resolved]
  - Constipation [Recovered/Resolved]
  - Painful defaecation [Recovered/Resolved]
  - Nausea [Recovered/Resolved]
  - Dizziness [Recovered/Resolved]
